FAERS Safety Report 16861675 (Version 2)
Quarter: 2019Q4

REPORT INFORMATION
  Report Type: Spontaneous
  Country: AU (occurrence: AU)
  Receive Date: 20190927
  Receipt Date: 20191121
  Transmission Date: 20200122
  Serious: Yes (Other)
  Sender: FDA-Public Use
  Company Number: PHHY2019AU222683

PATIENT
  Age: 40 Year

DRUGS (2)
  1. SECUKINUMAB. [Suspect]
     Active Substance: SECUKINUMAB
     Indication: PSORIATIC ARTHROPATHY
     Dosage: UNK
     Route: 065
     Dates: start: 201702
  2. SECUKINUMAB. [Suspect]
     Active Substance: SECUKINUMAB
     Indication: PSORIASIS

REACTIONS (12)
  - Neutrophil count decreased [Unknown]
  - Pemphigus [Unknown]
  - Otitis media [Unknown]
  - Nasopharyngitis [Unknown]
  - Palate injury [Unknown]
  - Rash vesicular [Unknown]
  - Arthralgia [Unknown]
  - Lymphocytic infiltration [Unknown]
  - Mouth ulceration [Unknown]
  - Abdominal discomfort [Recovered/Resolved]
  - Infection [Unknown]
  - Tonsillitis [Unknown]
